FAERS Safety Report 10402361 (Version 1)
Quarter: 2014Q3

REPORT INFORMATION
  Report Type: Spontaneous
  Country: None (occurrence: None)
  Receive Date: 20140820
  Receipt Date: 20140820
  Transmission Date: 20150326
  Serious: Yes (Other)
  Sender: FDA-Public Use
  Company Number: NSR_01606_2014

PATIENT
  Age: 38 Year
  Sex: Male

DRUGS (3)
  1. ANTIBIOTICS [Concomitant]
     Active Substance: UNSPECIFIED INGREDIENT
  2. CEFIXIME [Concomitant]
     Active Substance: CEFIXIME
  3. TRAMADOL [Suspect]
     Active Substance: TRAMADOL
     Indication: PNEUMONIA
     Dosage: AT NIGHT TIME

REACTIONS (3)
  - Restless legs syndrome [None]
  - Insomnia [None]
  - Withdrawal syndrome [None]
